FAERS Safety Report 9529858 (Version 1)
Quarter: 2013Q2

REPORT INFORMATION
  Report Type: Spontaneous
  Country: US (occurrence: None)
  Receive Date: 20130402
  Receipt Date: 20130402
  Transmission Date: 20140414
  Serious: Yes (Other)
  Sender: FDA-Public Use
  Company Number: RB-48496-2013

PATIENT
  Sex: Female

DRUGS (5)
  1. SUBUTEX [Suspect]
     Indication: BACK PAIN
     Dosage: 2 1/2 - 3 TABLETS A DAY TRANSPLACENTAL?
     Route: 064
     Dates: start: 201202, end: 20121023
  2. SUBOXONE [Suspect]
     Indication: BACK PAIN
     Dosage: 2 1/2 TO 3 TABS A DAY TRANSMAMMARY TO CONTINUING?
     Route: 064
     Dates: start: 2012, end: 201202
  3. FLEXERIL [Suspect]
     Indication: MUSCLE RELAXANT THERAPY
     Dosage: DOSING DETAILS UNKNOWN TRANSPLACENTAL
     Route: 064
     Dates: end: 20121023
  4. HYDROXYZINE [Suspect]
     Indication: ANXIETY
     Dosage: DOSING DETAILS
     Route: 064
     Dates: end: 20121023
  5. NICOTINE [Suspect]
     Indication: PRODUCT USED FOR UNKNOWN INDICATION
     Dosage: 1 CIGARETTES IN 4-5 DAYS TRANSPLACENTAL?
     Route: 064
     Dates: end: 20121023

REACTIONS (3)
  - Malaise [None]
  - Exposure during breast feeding [None]
  - Foetal exposure during pregnancy [None]
